FAERS Safety Report 5020365-X (Version None)
Quarter: 2006Q2

REPORT INFORMATION
  Report Type: 
  Country: None (occurrence: None)
  Receive Date: 20060601
  Receipt Date: 20060411
  Transmission Date: 20061013
  Serious: Yes (Hospitalization, Disabling)
  Sender: FDA-Public Use
  Company Number: 34324

PATIENT
  Age: 63 Year
  Sex: Male

DRUGS (1)
  1. TIMOLOL 0.50% (BATCH #:  21328) [Suspect]
     Indication: GLAUCOMA
     Dosage: OPHT
     Route: 047
     Dates: start: 20060311

REACTIONS (4)
  - BLINDNESS TRANSIENT [None]
  - HEADACHE [None]
  - KERATITIS [None]
  - TREATMENT NONCOMPLIANCE [None]
